FAERS Safety Report 22199541 (Version 1)
Quarter: 2023Q2

REPORT INFORMATION
  Report Type: Spontaneous
  Country: US (occurrence: US)
  Receive Date: 20230412
  Receipt Date: 20230412
  Transmission Date: 20230722
  Serious: No
  Sender: FDA-Public Use
  Company Number: US-STRIDES ARCOLAB LIMITED-2023SP004301

PATIENT
  Sex: Male

DRUGS (1)
  1. IBUPROFEN [Suspect]
     Active Substance: IBUPROFEN
     Indication: Drug therapy
     Dosage: 600 MILLIGRAM (2 DOSES; TO INGEST 12 H AND 60 MIN BEFORE EACH EXPERIMENTAL TRIAL) (CAPSULE)
     Route: 048

REACTIONS (1)
  - Abdominal distension [Unknown]
